FAERS Safety Report 8322354-6 (Version None)
Quarter: 2012Q2

REPORT INFORMATION
  Report Type: 
  Country: None (occurrence: None)
  Receive Date: 20120430
  Receipt Date: 20120427
  Transmission Date: 20120825
  Serious: Yes (Life-Threatening, Hospitalization)
  Sender: FDA-Public Use
  Company Number: FR-GENZYME-CAMP-1002082

PATIENT
  Age: 65 Year
  Sex: Male

DRUGS (7)
  1. CAMPATH [Suspect]
     Indication: MYELOID LEUKAEMIA
     Dosage: 3 MG, QD ON DAY 1
     Route: 065
     Dates: start: 20111116, end: 20111116
  2. CAMPATH [Suspect]
     Dosage: 10 MG, QD ON DAY 2
     Route: 065
     Dates: start: 20111117, end: 20111117
  3. DEPOCYT [Concomitant]
     Indication: MYELOID LEUKAEMIA
     Dosage: 50 MG, EVERY 15 DAYS
     Route: 065
     Dates: start: 20111116, end: 20111214
  4. CAMPATH [Suspect]
     Dosage: 30 MG, QD ON DAY 5
     Route: 065
     Dates: start: 20111120, end: 20111223
  5. DEXAMETHASONE [Concomitant]
     Indication: MYELOID LEUKAEMIA
     Dosage: UNK
     Dates: start: 20111116
  6. CAMPATH [Suspect]
     Dosage: 30 MG, QD ON DAY 3
     Route: 065
     Dates: start: 20111118, end: 20111118
  7. VALGANCICLOVIR [Concomitant]
     Indication: MYELOID LEUKAEMIA
     Dosage: 900 MG, QD
     Route: 065
     Dates: start: 20111116

REACTIONS (2)
  - CEREBRAL VENOUS THROMBOSIS [None]
  - HAEMATOMA [None]
